FAERS Safety Report 4810863-3 (Version None)
Quarter: 2005Q4

REPORT INFORMATION
  Report Type: 
  Country: None (occurrence: None)
  Receive Date: 20051027
  Receipt Date: 20050818
  Transmission Date: 20060501
  Serious: No
  Sender: FDA-Public Use
  Company Number: US-GLAXOSMITHKLINE-A0570868A

PATIENT
  Age: 45 Year
  Sex: Male
  Weight: 65.5 kg

DRUGS (6)
  1. LEXIVA [Suspect]
     Indication: HIV INFECTION
     Dosage: 700MG TWICE PER DAY
     Route: 048
     Dates: start: 20050307
  2. 3TC [Suspect]
     Indication: HIV INFECTION
     Dosage: 300MG PER DAY
     Route: 065
     Dates: start: 19960328
  3. HIVID [Suspect]
     Indication: HIV INFECTION
     Dosage: .75MG THREE TIMES PER DAY
     Route: 048
     Dates: start: 19960328
  4. ACYCLOVIR [Concomitant]
     Dosage: 800MG PER DAY
     Route: 048
  5. FLUCONAZOLE [Concomitant]
     Dosage: 100MG PER DAY
     Route: 048
     Dates: start: 20040303
  6. PRAVASTATIN [Concomitant]
     Dosage: 20MG PER DAY
     Route: 048

REACTIONS (1)
  - HIRSUTISM [None]
